FAERS Safety Report 8985462 (Version 1)
Quarter: 2012Q4

REPORT INFORMATION
  Report Type: 
  Country: FR (occurrence: FR)
  Receive Date: 20121226
  Receipt Date: 20121226
  Transmission Date: 20130627
  Serious: Yes (Hospitalization)
  Sender: FDA-Public Use
  Company Number: FR-009507513-1212FRA008036

PATIENT
  Age: 38 Year
  Sex: Male

DRUGS (3)
  1. TEMODAL [Suspect]
     Indication: ASTROCYTOMA
     Dosage: UNK
     Route: 048
     Dates: start: 20121123, end: 20121123
  2. ZOPHREN (ONDANSETRON) [Suspect]
     Indication: NAUSEA
     Dosage: UNK
     Dates: start: 20121123, end: 20121123
  3. TRILEPTAL [Suspect]
     Indication: EPILEPSY
     Dosage: 300 mg, bid
     Route: 048
     Dates: start: 20120825

REACTIONS (1)
  - Colitis ischaemic [Not Recovered/Not Resolved]
